FAERS Safety Report 6134894-9 (Version None)
Quarter: 2009Q1

REPORT INFORMATION
  Report Type: 
  Country: None (occurrence: None)
  Receive Date: 20090327
  Receipt Date: 20090317
  Transmission Date: 20090719
  Serious: Yes (Hospitalization)
  Sender: FDA-Public Use
  Company Number: JP-PFIZER INC-2009178109

PATIENT

DRUGS (4)
  1. TOPOTECIN [Suspect]
     Indication: COLON CANCER
     Dosage: 200 MG, UNK
     Route: 041
     Dates: start: 20090205, end: 20090205
  2. TS-1 [Suspect]
     Indication: COLON CANCER
     Dosage: 100 MG, 2X/DAY
     Route: 048
     Dates: start: 20090205, end: 20090215
  3. MAGNESIUM OXIDE [Suspect]
     Indication: CONSTIPATION
     Dosage: 1 G, 3X/DAY
     Route: 048
     Dates: start: 20090213, end: 20090215
  4. TELEMINSOFT [Concomitant]
     Indication: CONSTIPATION
     Dosage: 1 DF, AS NEEDED
     Route: 054
     Dates: start: 20090213, end: 20090213

REACTIONS (3)
  - ATRIAL FIBRILLATION [None]
  - DEHYDRATION [None]
  - DIARRHOEA [None]
